FAERS Safety Report 10576268 (Version 1)
Quarter: 2014Q4

REPORT INFORMATION
  Report Type: Spontaneous
  Country: US (occurrence: None)
  Receive Date: 20141107
  Receipt Date: 20141107
  Transmission Date: 20150529
  Serious: Yes (Life-Threatening, Hospitalization)
  Sender: FDA-Public Use
  Company Number: IMP_08042_2014

PATIENT
  Age: 53 Year
  Sex: Female

DRUGS (1)
  1. DIGOXIN. [Suspect]
     Active Substance: DIGOXIN
     Indication: PRODUCT USED FOR UNKNOWN INDICATION
     Dosage: DOSAGE USED UNKNOWN ORAL
     Route: 048

REACTIONS (16)
  - Chest pain [None]
  - Troponin increased [None]
  - Cardiotoxicity [None]
  - Cough [None]
  - Nodal rhythm [None]
  - Supraventricular tachycardia [None]
  - Bradycardia [None]
  - Ventricular tachycardia [None]
  - Ventricular fibrillation [None]
  - Cardiac arrest [None]
  - Electrocardiogram ST segment depression [None]
  - Chronic obstructive pulmonary disease [None]
  - Nausea [None]
  - Toxicity to various agents [None]
  - Dyspnoea exertional [None]
  - Abdominal pain [None]
